FAERS Safety Report 9162833 (Version 1)
Quarter: 2013Q1

REPORT INFORMATION
  Report Type: Spontaneous
  Country: US (occurrence: None)
  Receive Date: 20130222
  Receipt Date: 20130222
  Transmission Date: 20140127
  Serious: Yes (Other)
  Sender: FDA-Public Use
  Company Number: 2013-040

PATIENT
  Age: 42 Year
  Sex: Male
  Weight: 122.4 kg

DRUGS (1)
  1. FAZACLO [Suspect]
     Dosage: 25-400 MG, QD, ORAL
     Route: 048
     Dates: start: 20050630, end: 20121128

REACTIONS (5)
  - Mitral valve disease [None]
  - Myocarditis [None]
  - Oedema peripheral [None]
  - Weight increased [None]
  - Hypertension [None]
